FAERS Safety Report 4305810-7 (Version None)
Quarter: 2004Q1

REPORT INFORMATION
  Report Type: 
  Country: None (occurrence: None)
  Receive Date: 20040225
  Receipt Date: 20040211
  Transmission Date: 20041129
  Serious: Yes (Other)
  Sender: FDA-Public Use
  Company Number: 2004-DE-00706DE

PATIENT
  Age: 69 Year
  Sex: Male

DRUGS (1)
  1. MICARDIS [Suspect]
     Indication: DIABETIC NEPHROPATHY
     Dosage: 160 MG (80 MG, 2 IN 1 D) PO
     Route: 048
     Dates: start: 20030710

REACTIONS (2)
  - DIALYSIS [None]
  - RENAL FAILURE ACUTE [None]
